FAERS Safety Report 12284468 (Version 2)
Quarter: 2016Q2

REPORT INFORMATION
  Report Type: Spontaneous
  Country: US (occurrence: US)
  Receive Date: 20160420
  Receipt Date: 20160603
  Transmission Date: 20160815
  Serious: Yes (Death)
  Sender: FDA-Public Use
  Company Number: US-JNJCP-30000332385

PATIENT
  Sex: Female

DRUGS (1)
  1. JOHNSONS PRODUCTS [Suspect]
     Active Substance: UNSPECIFIED INGREDIENT
     Indication: PRODUCT USED FOR UNKNOWN INDICATION
     Dosage: EVERYDAY, MULTIPLE TIMES
     Route: 061

REACTIONS (1)
  - Ovarian cancer [Fatal]
